FAERS Safety Report 6264979-8 (Version None)
Quarter: 2009Q3

REPORT INFORMATION
  Report Type: 
  Country: None (occurrence: None)
  Receive Date: 20090713
  Receipt Date: 20070724
  Transmission Date: 20100115
  Serious: Yes (Other)
  Sender: FDA-Public Use
  Company Number: US-ASTRAZENECA-2007UW06050

PATIENT
  Age: 602 Month
  Sex: Female
  Weight: 163.3 kg

DRUGS (12)
  1. SEROQUEL [Suspect]
     Indication: DEPRESSION
     Dosage: 25-200 MG
     Route: 048
     Dates: start: 20010504
  2. SEROQUEL [Suspect]
     Dosage: 1-3 TABS PER DAY
     Route: 048
     Dates: start: 20020222, end: 20040223
  3. RISPERDAL [Concomitant]
     Indication: DEPRESSION
     Dates: start: 20011001, end: 20020212
  4. ZOCOR [Concomitant]
  5. ZIAC [Concomitant]
  6. INDOMETHACIN [Concomitant]
  7. PREMARIN [Concomitant]
  8. WELLBUTRIN [Concomitant]
  9. TRAZODONE [Concomitant]
  10. LEXAPRO [Concomitant]
  11. PROTONIX [Concomitant]
  12. PAXIL [Concomitant]

REACTIONS (2)
  - NEUROPATHY PERIPHERAL [None]
  - TYPE 2 DIABETES MELLITUS [None]
